FAERS Safety Report 13662862 (Version 1)
Quarter: 2017Q2

REPORT INFORMATION
  Report Type: Spontaneous
  Country: US (occurrence: US)
  Receive Date: 20170616
  Receipt Date: 20170616
  Transmission Date: 20170830
  Serious: Yes (Other)
  Sender: FDA-Public Use
  Company Number: None

PATIENT
  Age: 74 Year
  Sex: Female
  Weight: 86.4 kg

DRUGS (13)
  1. METHOCARBIMOL [Concomitant]
  2. VITAMIN D [Concomitant]
     Active Substance: CHOLECALCIFEROL
  3. LEVOFLOXACIN. [Suspect]
     Active Substance: LEVOFLOXACIN
     Indication: PNEUMONIA
     Dosage: ?          QUANTITY:1 TABLET(S);?
     Route: 048
     Dates: start: 20170607, end: 20170615
  4. VITAMIN B12 [Concomitant]
     Active Substance: CYANOCOBALAMIN
  5. EFA [Concomitant]
  6. LITHIUM. [Concomitant]
     Active Substance: LITHIUM
  7. PREVICID [Concomitant]
  8. LAMICTAL [Concomitant]
     Active Substance: LAMOTRIGINE
  9. CELEBREX [Concomitant]
     Active Substance: CELECOXIB
  10. DOXYCYCLINE. [Concomitant]
     Active Substance: DOXYCYCLINE
  11. MULTIVITS [Concomitant]
  12. THYROID [Concomitant]
     Active Substance: LEVOTHYROXINE\LIOTHYRONINE
  13. TRAZODONE [Concomitant]
     Active Substance: TRAZODONE HYDROCHLORIDE

REACTIONS (1)
  - Tendon rupture [None]

NARRATIVE: CASE EVENT DATE: 20170608
